FAERS Safety Report 16086655 (Version 1)
Quarter: 2019Q1

REPORT INFORMATION
  Report Type: Spontaneous
  Country: US (occurrence: US)
  Receive Date: 20190318
  Receipt Date: 20190318
  Transmission Date: 20190418
  Serious: No
  Sender: FDA-Public Use
  Company Number: US-SHIRE-US201908410

PATIENT
  Age: 56 Year
  Sex: Female
  Weight: 68.03 kg

DRUGS (3)
  1. VYVANSE [Suspect]
     Active Substance: LISDEXAMFETAMINE DIMESYLATE
     Dosage: 50 MILLIGRAM, AS REQ^D
     Route: 048
     Dates: start: 2015
  2. VYVANSE [Suspect]
     Active Substance: LISDEXAMFETAMINE DIMESYLATE
     Indication: PRODUCT USED FOR UNKNOWN INDICATION
     Dosage: 70 MILLIGRAM, 1X/DAY:QD
     Route: 048
     Dates: start: 2015, end: 2015
  3. VYVANSE [Suspect]
     Active Substance: LISDEXAMFETAMINE DIMESYLATE
     Dosage: 50 MILLIGRAM, 1X/DAY:QD
     Route: 048
     Dates: start: 2015

REACTIONS (7)
  - Influenza like illness [Recovered/Resolved]
  - Somnolence [Unknown]
  - Wrong technique in product usage process [Recovered/Resolved]
  - Drug ineffective [Not Recovered/Not Resolved]
  - Sleep disorder [Recovered/Resolved]
  - Drug withdrawal syndrome [Unknown]
  - Lethargy [Not Recovered/Not Resolved]

NARRATIVE: CASE EVENT DATE: 2015
